FAERS Safety Report 23545813 (Version 1)
Quarter: 2024Q1

REPORT INFORMATION
  Report Type: Spontaneous
  Country: US (occurrence: None)
  Receive Date: 20240219
  Receipt Date: 20240219
  Transmission Date: 20240409
  Serious: Yes (Hospitalization)
  Sender: FDA-Public Use
  Company Number: None

PATIENT
  Age: 33 Year
  Sex: Male

DRUGS (1)
  1. RINVOQ [Suspect]
     Active Substance: UPADACITINIB
     Indication: Dermatitis atopic
     Dosage: FREQUENCY : DAILY;?
     Route: 048
     Dates: start: 20220524, end: 20240216

REACTIONS (4)
  - Abdominal pain [None]
  - Vomiting [None]
  - Gastrointestinal haemorrhage [None]
  - Gastrointestinal perforation [None]

NARRATIVE: CASE EVENT DATE: 20240215
